FAERS Safety Report 20020383 (Version 3)
Quarter: 2021Q4

REPORT INFORMATION
  Report Type: Report from Study
  Country: FR (occurrence: FR)
  Receive Date: 20211101
  Receipt Date: 20211112
  Transmission Date: 20220303
  Serious: No
  Sender: FDA-Public Use
  Company Number: FR-JNJFOC-20210753816

PATIENT
  Age: 35 Year
  Sex: Female

DRUGS (18)
  1. SPRAVATO [Suspect]
     Active Substance: ESKETAMINE
     Indication: Depression
     Dates: start: 20210510
  2. SPRAVATO [Suspect]
     Active Substance: ESKETAMINE
     Dates: start: 20210512, end: 20210721
  3. SPRAVATO [Suspect]
     Active Substance: ESKETAMINE
     Dates: start: 20210517
  4. SPRAVATO [Suspect]
     Active Substance: ESKETAMINE
     Dates: start: 20210519
  5. SPRAVATO [Suspect]
     Active Substance: ESKETAMINE
     Dates: start: 20210525
  6. SPRAVATO [Suspect]
     Active Substance: ESKETAMINE
     Dates: start: 20210527
  7. SPRAVATO [Suspect]
     Active Substance: ESKETAMINE
     Dates: start: 20210531
  8. SPRAVATO [Suspect]
     Active Substance: ESKETAMINE
     Dates: start: 20210602
  9. SPRAVATO [Suspect]
     Active Substance: ESKETAMINE
     Dates: start: 20210607
  10. SPRAVATO [Suspect]
     Active Substance: ESKETAMINE
     Dates: start: 20210616
  11. SPRAVATO [Suspect]
     Active Substance: ESKETAMINE
     Dates: start: 20210624
  12. SPRAVATO [Suspect]
     Active Substance: ESKETAMINE
     Dates: start: 20210629
  13. SPRAVATO [Suspect]
     Active Substance: ESKETAMINE
     Dates: start: 20210721
  14. SPRAVATO [Suspect]
     Active Substance: ESKETAMINE
     Dates: start: 20210728
  15. SPRAVATO [Suspect]
     Active Substance: ESKETAMINE
     Dates: start: 20210827
  16. SPRAVATO [Suspect]
     Active Substance: ESKETAMINE
     Dates: start: 20210907
  17. PREGABALIN [Concomitant]
     Active Substance: PREGABALIN
     Indication: Anxiety
  18. ARIPIPRAZOLE [Concomitant]
     Active Substance: ARIPIPRAZOLE
     Dates: start: 20201217

REACTIONS (1)
  - Drug ineffective [Recovered/Resolved]

NARRATIVE: CASE EVENT DATE: 20210512
